FAERS Safety Report 18217494 (Version 2)
Quarter: 2020Q3

REPORT INFORMATION
  Report Type: Spontaneous
  Country: US (occurrence: US)
  Receive Date: 20200901
  Receipt Date: 20200930
  Transmission Date: 20201103
  Serious: Yes (Death, Other)
  Sender: FDA-Public Use
  Company Number: US-MYLANLABS-2020M1075144

PATIENT
  Sex: Female
  Weight: 107 kg

DRUGS (2)
  1. TRAMADOL HYDROCHLORIDE. [Suspect]
     Active Substance: TRAMADOL HYDROCHLORIDE
     Indication: PAIN
     Dosage: 2?3 TIMES A DAY
     Dates: start: 2010
  2. TRAMADOL HYDROCHLORIDE. [Suspect]
     Active Substance: TRAMADOL HYDROCHLORIDE
     Indication: HEADACHE

REACTIONS (5)
  - Social avoidant behaviour [Unknown]
  - Drug dependence [Unknown]
  - Death [Fatal]
  - Drug abuse [Unknown]
  - Heart rate increased [Unknown]
